FAERS Safety Report 8060409 (Version 2)
Quarter: 2013Q3

REPORT INFORMATION
  Report Type: Spontaneous
  Country: US (occurrence: US)
  Receive Date: 20110729
  Receipt Date: 20130701
  Transmission Date: 20140515
  Serious: No
  Sender: FDA-Public Use
  Company Number: US-GLAXOSMITHKLINE-A0921826A

PATIENT
  Age: 56 Year
  Sex: Female

DRUGS (6)
  1. IMITREX [Suspect]
     Indication: MIGRAINE
     Dosage: 100MG AS REQUIRED
     Route: 048
     Dates: start: 20090424
  2. AMBIEN [Concomitant]
  3. XANAX [Concomitant]
  4. TRAMADOL [Concomitant]
  5. NEXIUM [Concomitant]
  6. EXCEDRIN [Concomitant]

REACTIONS (4)
  - Arthralgia [Unknown]
  - Back pain [Unknown]
  - Migraine [Unknown]
  - Drug ineffective [Unknown]
